FAERS Safety Report 17775606 (Version 4)
Quarter: 2021Q3

REPORT INFORMATION
  Report Type: Report from Study
  Country: US (occurrence: US)
  Receive Date: 20200513
  Receipt Date: 20210909
  Transmission Date: 20211014
  Serious: No
  Sender: FDA-Public Use
  Company Number: US-ACADIA PHARMACEUTICALS INC.-ACA-2020-PIM-001092

PATIENT
  Sex: Male

DRUGS (25)
  1. PYRIDOSTIGMINE BROMIDE EXTENDED RELEASE [Concomitant]
     Active Substance: PYRIDOSTIGMINE BROMIDE
  2. ARICEPT [Concomitant]
     Active Substance: DONEPEZIL HYDROCHLORIDE
  3. SINEMET [Concomitant]
     Active Substance: CARBIDOPA\LEVODOPA
  4. FIBER [Concomitant]
     Active Substance: PSYLLIUM HUSK
     Dosage: 0.52 GRAM
  5. NUPLAZID [Suspect]
     Active Substance: PIMAVANSERIN TARTRATE
     Indication: PARKINSON^S DISEASE
     Dosage: 34 MILLIGRAM, QD
     Route: 048
     Dates: start: 2020
  6. DONEPEZIL HCL [Concomitant]
     Active Substance: DONEPEZIL HYDROCHLORIDE
     Dosage: 10 MILLIGRAM
  7. NITROFURANTOIN. [Concomitant]
     Active Substance: NITROFURANTOIN
  8. VITAMIN D3 [Concomitant]
     Active Substance: CHOLECALCIFEROL
  9. VITAMIN B12 [Concomitant]
     Active Substance: CYANOCOBALAMIN
     Dosage: 1000 MICROGRAM
  10. DOCUSATE CALCIUM. [Concomitant]
     Active Substance: DOCUSATE CALCIUM
  11. RYTARY [Concomitant]
     Active Substance: CARBIDOPA\LEVODOPA
  12. NORTHERA [Concomitant]
     Active Substance: DROXIDOPA
     Indication: PRODUCT USED FOR UNKNOWN INDICATION
     Dosage: 300 MILLIGRAM
  13. DULCOLAX (BISACODYL) [Suspect]
     Active Substance: BISACODYL
     Dosage: EVERY OTHER DAY
  14. NAMENDA [Suspect]
     Active Substance: MEMANTINE HYDROCHLORIDE
     Indication: PRODUCT USED FOR UNKNOWN INDICATION
     Dosage: 5 MILLIGRAM, BID
  15. DUOPA [Concomitant]
     Active Substance: CARBIDOPA\LEVODOPA
  16. SULFAMETHOXAZOLE AND TRIMETHOPRIM [Concomitant]
     Active Substance: SULFAMETHOXAZOLE\TRIMETHOPRIM
  17. FLONASE [Concomitant]
     Active Substance: FLUTICASONE PROPIONATE
  18. PROBIOTIC [BIFIDOBACTERIUM INFANTIS;LACTOBACILLUS ACIDOPHILUS] [Concomitant]
  19. DULCOLAX (BISACODYL) [Suspect]
     Active Substance: BISACODYL
     Dosage: 5 MILLIGRAM, QD
  20. MIDODRINE HCL [Concomitant]
     Active Substance: MIDODRINE HYDROCHLORIDE
  21. MEMANTINE HCL [Concomitant]
     Active Substance: MEMANTINE
     Dosage: 14 MILLIGRAM SPR 24
  22. FLUDROCORTISONE ACETATE. [Concomitant]
     Active Substance: FLUDROCORTISONE ACETATE
  23. COMTAN [Concomitant]
     Active Substance: ENTACAPONE
  24. MELATONIN [Concomitant]
     Active Substance: MELATONIN
     Dosage: 10 MILLIGRAM
  25. DROXIDOPA [Concomitant]
     Active Substance: DROXIDOPA

REACTIONS (3)
  - Diarrhoea [Unknown]
  - Delusion [Unknown]
  - Wrong technique in product usage process [Unknown]
